FAERS Safety Report 7624356-1 (Version None)
Quarter: 2011Q3

REPORT INFORMATION
  Report Type: 
  Country: None (occurrence: None)
  Receive Date: 20110712
  Receipt Date: 20110627
  Transmission Date: 20111222
  Serious: Yes (Other)
  Sender: FDA-Public Use
  Company Number: 1000021710

PATIENT
  Age: 33 Year
  Sex: Male
  Weight: 87 kg

DRUGS (2)
  1. TEMESTA EXPIDET (ASTEMIZOLE)(ASTEMIZOLE) [Concomitant]
  2. ESCITALOPRAM OXALATE [Suspect]
     Indication: PANIC DISORDER
     Dosage: 30 MG (30 MG,1 IN 1 D),ORAL,DOSAGE REDUCED (UNKNOWN DOSAGE),ORAL
     Route: 048
     Dates: start: 20070301, end: 20110301

REACTIONS (5)
  - WEIGHT INCREASED [None]
  - MUSCLE TWITCHING [None]
  - OVERDOSE [None]
  - WITHDRAWAL SYNDROME [None]
  - FEELING ABNORMAL [None]
